FAERS Safety Report 18912641 (Version 1)
Quarter: 2021Q1

REPORT INFORMATION
  Report Type: Spontaneous
  Country: US (occurrence: US)
  Receive Date: 20210219
  Receipt Date: 20210219
  Transmission Date: 20210420
  Serious: No
  Sender: FDA-Public Use
  Company Number: US-GLAXOSMITHKLINE-USCH2021007669

PATIENT

DRUGS (3)
  1. VOLTAREN [Suspect]
     Active Substance: DICLOFENAC SODIUM
     Indication: MUSCLE SPASMS
     Dosage: UNK
  2. VOLTAREN [Suspect]
     Active Substance: DICLOFENAC SODIUM
     Indication: CARPAL TUNNEL SYNDROME
  3. VOLTAREN [Suspect]
     Active Substance: DICLOFENAC SODIUM
     Indication: TENDONITIS

REACTIONS (1)
  - Drug ineffective for unapproved indication [Unknown]
